FAERS Safety Report 15956889 (Version 3)
Quarter: 2019Q1

REPORT INFORMATION
  Report Type: Spontaneous
  Country: US (occurrence: US)
  Receive Date: 20190213
  Receipt Date: 20190325
  Transmission Date: 20190417
  Serious: No
  Sender: FDA-Public Use
  Company Number: US-ALKERMES INC.-ALK-2019-000676

PATIENT
  Age: 6 Decade
  Sex: Male
  Weight: 81.63 kg

DRUGS (1)
  1. VIVITROL [Suspect]
     Active Substance: NALTREXONE
     Indication: ALCOHOLISM
     Dosage: 380 MG, QMO
     Route: 030

REACTIONS (2)
  - Mental status changes [Recovering/Resolving]
  - Alcohol poisoning [Recovering/Resolving]

NARRATIVE: CASE EVENT DATE: 20190207
